FAERS Safety Report 6129448-4 (Version None)
Quarter: 2009Q1

REPORT INFORMATION
  Report Type: 
  Country: None (occurrence: None)
  Receive Date: 20090324
  Receipt Date: 20090312
  Transmission Date: 20090719
  Serious: Yes (Disabling)
  Sender: FDA-Public Use
  Company Number: US-PFIZER INC-2009182858

PATIENT
  Sex: Male
  Weight: 72.574 kg

DRUGS (1)
  1. AZITHROMYCIN [Suspect]
     Indication: VIRAL INFECTION
     Dosage: 500 MG, 1X/DAY
     Dates: start: 20090308

REACTIONS (2)
  - DYSSTASIA [None]
  - PAIN IN EXTREMITY [None]
